FAERS Safety Report 11324522 (Version 1)
Quarter: 2015Q3

REPORT INFORMATION
  Report Type: Spontaneous
  Country: US (occurrence: US)
  Receive Date: 20150730
  Receipt Date: 20150730
  Transmission Date: 20151125
  Serious: No
  Sender: FDA-Public Use
  Company Number: US-BAXALTA-2015BLT000752

PATIENT
  Sex: Female

DRUGS (3)
  1. GAMMAGARD LIQUID [Suspect]
     Active Substance: HUMAN IMMUNOGLOBULIN G
     Indication: PRIMARY IMMUNODEFICIENCY SYNDROME
     Dosage: 35 G, EVERY 3 WK
     Dates: start: 20150521
  2. CARIMUNE [Concomitant]
     Active Substance: HUMAN IMMUNOGLOBULIN G
     Indication: PRODUCT USED FOR UNKNOWN INDICATION
  3. PRIVIGEN [Concomitant]
     Active Substance: HUMAN IMMUNOGLOBULIN G
     Indication: PRODUCT USED FOR UNKNOWN INDICATION

REACTIONS (18)
  - Oropharyngeal pain [Unknown]
  - Arthralgia [Unknown]
  - Pain [Unknown]
  - Back pain [Unknown]
  - Regurgitation [Unknown]
  - Ear pain [Unknown]
  - Vomiting [Unknown]
  - Nausea [Unknown]
  - Throat irritation [Unknown]
  - Insomnia [Unknown]
  - Choking sensation [Unknown]
  - Dyspepsia [Unknown]
  - Malaise [Unknown]
  - Chest pain [Unknown]
  - Tooth disorder [Unknown]
  - Influenza like illness [Unknown]
  - Gastric dilatation [Unknown]
  - Pruritus [Unknown]
